FAERS Safety Report 24242202 (Version 3)
Quarter: 2024Q4

REPORT INFORMATION
  Report Type: Spontaneous
  Country: US (occurrence: US)
  Receive Date: 20240823
  Receipt Date: 20241018
  Transmission Date: 20250114
  Serious: No
  Sender: SANDOZ
  Company Number: US-SANDOZ-SDZ2024US074478

PATIENT
  Sex: Female

DRUGS (1)
  1. TRIFLURIDINE [Suspect]
     Active Substance: TRIFLURIDINE
     Indication: Product used for unknown indication
     Dosage: 9QD, (9X A DAY,DROPS), TRIFLURIDINE 1% 7.5ML LDP US
     Route: 047

REACTIONS (4)
  - Accidental exposure to product [Unknown]
  - Exposure via skin contact [Unknown]
  - Product use complaint [Unknown]
  - Product leakage [Unknown]
